FAERS Safety Report 12759959 (Version 1)
Quarter: 2016Q3

REPORT INFORMATION
  Report Type: Spontaneous
  Country: FR (occurrence: FR)
  Receive Date: 20160919
  Receipt Date: 20160919
  Transmission Date: 20161109
  Serious: Yes (Death, Hospitalization, Other)
  Sender: FDA-Public Use
  Company Number: PHHY2016FR128085

PATIENT
  Sex: Male

DRUGS (1)
  1. VOLTARENE [Suspect]
     Active Substance: DICLOFENAC SODIUM
     Indication: BACK PAIN
     Dosage: UNK
     Route: 048
     Dates: start: 201407, end: 201408

REACTIONS (3)
  - Gastrointestinal haemorrhage [Fatal]
  - Acute kidney injury [Not Recovered/Not Resolved]
  - Hyperkalaemia [Recovered/Resolved]
